FAERS Safety Report 7405114-X (Version None)
Quarter: 2011Q2

REPORT INFORMATION
  Report Type: 
  Country: None (occurrence: None)
  Receive Date: 20110404
  Receipt Date: 20110322
  Transmission Date: 20111010
  Serious: Yes (Congenital Anomaly)
  Sender: FDA-Public Use
  Company Number: 870162

PATIENT
  Sex: Male

DRUGS (5)
  1. METHOTREXATE [Concomitant]
  2. (THERAPEUTIC RADIOPHARMACEUTICALS) [Concomitant]
  3. FLUOROURACIL [Suspect]
     Dosage: TRANSPLACENTAL
     Route: 064
  4. EPIRUBICIN HYDROCHLORIDE [Suspect]
     Dosage: TRANSPLACENTAL
     Route: 064
  5. CYCLOPHOSPHAMIDE [Suspect]
     Dosage: TRANSPLACENTAL
     Route: 064

REACTIONS (8)
  - MICROGNATHIA [None]
  - MATERNAL DRUGS AFFECTING FOETUS [None]
  - SYNDACTYLY [None]
  - ABORTION INDUCED [None]
  - FINGER HYPOPLASIA [None]
  - CONGENITAL FOOT MALFORMATION [None]
  - CONGENITAL HAND MALFORMATION [None]
  - CLINODACTYLY [None]
